FAERS Safety Report 13739883 (Version 1)
Quarter: 2017Q3

REPORT INFORMATION
  Report Type: Spontaneous
  Country: US (occurrence: US)
  Receive Date: 20170711
  Receipt Date: 20170711
  Transmission Date: 20171127
  Serious: No
  Sender: FDA-Public Use
  Company Number: US-IPSEN BIOPHARMACEUTICALS, INC.-2014-3693

PATIENT
  Sex: Female

DRUGS (2)
  1. DYSPORT [Suspect]
     Active Substance: ABOBOTULINUMTOXINA
     Dosage: NOT REPORTED
     Route: 065
     Dates: start: 20140430, end: 20140430
  2. DYSPORT [Suspect]
     Active Substance: ABOBOTULINUMTOXINA
     Indication: SKIN COSMETIC PROCEDURE
     Dosage: NOT REPORTED
     Route: 065
     Dates: start: 201404, end: 201404

REACTIONS (3)
  - Inappropriate schedule of drug administration [Unknown]
  - Drug ineffective [Unknown]
  - Drug effect decreased [Unknown]
